FAERS Safety Report 8561585 (Version 3)
Quarter: 2013Q4

REPORT INFORMATION
  Report Type: Spontaneous
  Country: US (occurrence: US)
  Receive Date: 20120515
  Receipt Date: 20131119
  Transmission Date: 20140711
  Serious: No
  Sender: FDA-Public Use
  Company Number: US-BIOGENIDEC-2012BI016316

PATIENT
  Age: 36 Year
  Sex: Female

DRUGS (1)
  1. TYSABRI [Suspect]
     Indication: MULTIPLE SCLEROSIS
     Route: 042
     Dates: start: 20120425

REACTIONS (15)
  - Somnolence [Recovered/Resolved]
  - Fall [Recovered/Resolved]
  - Balance disorder [Recovered/Resolved]
  - Aphasia [Not Recovered/Not Resolved]
  - Cognitive disorder [Unknown]
  - Coordination abnormal [Recovered/Resolved]
  - Hemiparesis [Unknown]
  - Foot fracture [Unknown]
  - Muscle spasms [Unknown]
  - Gait disturbance [Unknown]
  - Urinary incontinence [Unknown]
  - Weight decreased [Unknown]
  - Faecal incontinence [Unknown]
  - Asthenia [Not Recovered/Not Resolved]
  - Fatigue [Unknown]
